FAERS Safety Report 4703416-9 (Version None)
Quarter: 2005Q2

REPORT INFORMATION
  Report Type: 
  Country: None (occurrence: None)
  Receive Date: 20050629
  Receipt Date: 20050613
  Transmission Date: 20051028
  Serious: Yes (Other)
  Sender: FDA-Public Use
  Company Number: PHBS2005IN08510

PATIENT
  Age: 50 Year
  Sex: Male

DRUGS (2)
  1. VISUDYNE [Suspect]
     Indication: CHOROIDAL NEOVASCULARISATION
  2. VISUDYNE [Suspect]
     Indication: TELANGIECTASIA

REACTIONS (4)
  - RETINAL DEGENERATION [None]
  - RETINAL PIGMENT EPITHELIOPATHY [None]
  - SCAR [None]
  - VISUAL ACUITY REDUCED [None]
